FAERS Safety Report 25192434 (Version 1)
Quarter: 2025Q2

REPORT INFORMATION
  Report Type: Other
  Country: JP (occurrence: JP)
  Receive Date: 20250414
  Receipt Date: 20250414
  Transmission Date: 20250717
  Serious: Yes (Hospitalization, Other)
  Sender: LYNE LABORATORIES
  Company Number: JP-Lyne Laboratories Inc.-2174810

PATIENT
  Age: 70 Year
  Sex: Male

DRUGS (4)
  1. DEXAMETHASONE [Suspect]
     Active Substance: DEXAMETHASONE
     Indication: Plasma cell myeloma
  2. POMALIDOMIDE [Concomitant]
     Active Substance: POMALIDOMIDE
  3. SULFAMETHOXAZOLE AND TRIMETHOPRIM [Concomitant]
     Active Substance: SULFAMETHOXAZOLE\TRIMETHOPRIM
  4. BORTEZOMIB [Concomitant]
     Active Substance: BORTEZOMIB

REACTIONS (3)
  - Humoral immune defect [Recovered/Resolved]
  - Product use in unapproved indication [Unknown]
  - Cell-mediated immune deficiency [Recovered/Resolved]
